FAERS Safety Report 6794773-0 (Version None)
Quarter: 2010Q2

REPORT INFORMATION
  Report Type: 
  Country: None (occurrence: None)
  Receive Date: 20100625
  Receipt Date: 20100615
  Transmission Date: 20101027
  Serious: Yes (Hospitalization, Other)
  Sender: FDA-Public Use
  Company Number: FR-PFIZER INC-2010074540

PATIENT
  Age: 64 Year
  Sex: Female

DRUGS (12)
  1. XANAX [Suspect]
     Indication: ANXIETY
     Dosage: 0.5 MG, 1X/DAY
     Route: 048
  2. ARAVA [Suspect]
     Indication: RHEUMATOID ARTHRITIS
     Dosage: 20 MG, 1X/DAY
     Route: 048
     Dates: start: 20020101, end: 20091210
  3. HUMIRA [Suspect]
     Indication: RHEUMATOID ARTHRITIS
     Dosage: 40 MG, CYCLIC, TWICE MONTHLY
     Route: 058
     Dates: start: 20090401, end: 20100301
  4. MOPRAL [Suspect]
     Dosage: 20 MG, 1X/DAY
     Route: 048
  5. CITALOPRAM HYDROBROMIDE [Suspect]
     Indication: DEPRESSION
     Dosage: 20 MG, 1X/DAY
     Route: 048
  6. RIVOTRIL [Suspect]
     Indication: SLEEP DISORDER
     Dosage: 15 MG, 1X/DAY
     Route: 048
  7. CORTANCYL [Suspect]
     Dosage: 10 MG, 1X/DAY
     Route: 048
  8. ACTONEL [Suspect]
     Dosage: 35 MG, WEEKLY
     Route: 048
  9. NEBIVOLOL [Suspect]
     Dosage: 5 MG, 1X/DAY
     Route: 048
  10. TAREG [Suspect]
     Indication: HYPERTENSION
     Dosage: 160 MG, 1X/DAY
     Route: 048
  11. DAFALGAN [Suspect]
     Dosage: 3 TO 4 GRAMS DAILY
     Route: 048
  12. ETANERCEPT [Concomitant]
     Dosage: 50 MG, WEEKLY
     Dates: start: 20100301

REACTIONS (2)
  - AXONAL NEUROPATHY [None]
  - MUSCULAR WEAKNESS [None]
